FAERS Safety Report 25976489 (Version 1)
Quarter: 2025Q4

REPORT INFORMATION
  Report Type: Spontaneous
  Country: US (occurrence: None)
  Receive Date: 20251029
  Receipt Date: 20251029
  Transmission Date: 20260118
  Serious: Yes (unspecified)
  Sender: FDA-CTU
  Company Number: None

PATIENT
  Age: 59 Year
  Sex: Female
  Weight: 88.65 kg

DRUGS (7)
  1. TOPIRAMATE [Suspect]
     Active Substance: TOPIRAMATE
     Dosage: 100 TABLET(S) 4 TIMES A DAY ORAL?
     Route: 048
     Dates: start: 20250824, end: 20251010
  2. IRBESARTAN [Concomitant]
     Active Substance: IRBESARTAN
  3. PROPRANOLOL [Concomitant]
     Active Substance: PROPRANOLOL HYDROCHLORIDE
  4. ISOSORDIL [Concomitant]
  5. LEVOTHYROXINE [Concomitant]
     Active Substance: LEVOTHYROXINE
  6. ATORVASTATIN [Concomitant]
     Active Substance: ATORVASTATIN
  7. OMEPRAZOLE [Concomitant]
     Active Substance: OMEPRAZOLE

REACTIONS (26)
  - Burning sensation [None]
  - Abdominal pain upper [None]
  - Abdominal discomfort [None]
  - Oral discomfort [None]
  - Throat irritation [None]
  - Oesophageal pain [None]
  - Blood pressure decreased [None]
  - Asthenia [None]
  - Gait inability [None]
  - Amnesia [None]
  - Aphasia [None]
  - Hypophagia [None]
  - Nausea [None]
  - Hyperacusis [None]
  - Anxiety [None]
  - Agitation [None]
  - Crying [None]
  - Emotional disorder [None]
  - Therapy cessation [None]
  - Xanthopsia [None]
  - Xanthopsia [None]
  - Neuralgia [None]
  - Abdominal pain upper [None]
  - Gastrooesophageal reflux disease [None]
  - Drug ineffective [None]
  - Feeling abnormal [None]

NARRATIVE: CASE EVENT DATE: 20250824
